FAERS Safety Report 9831366 (Version 4)
Quarter: 2014Q1

REPORT INFORMATION
  Report Type: Spontaneous
  Country: US (occurrence: US)
  Receive Date: 20140121
  Receipt Date: 20140224
  Transmission Date: 20141002
  Serious: No
  Sender: FDA-Public Use
  Company Number: US-BIOGENIDEC-2014BI003014

PATIENT
  Age: 27 Year
  Sex: Female

DRUGS (2)
  1. AVONEX [Suspect]
     Indication: MULTIPLE SCLEROSIS
     Route: 030
  2. AVONEX [Suspect]
     Indication: MULTIPLE SCLEROSIS
     Route: 030
     Dates: start: 20131121

REACTIONS (19)
  - Mobility decreased [Not Recovered/Not Resolved]
  - Paranoia [Not Recovered/Not Resolved]
  - Vision blurred [Not Recovered/Not Resolved]
  - Balance disorder [Recovered/Resolved]
  - Coordination abnormal [Recovered/Resolved]
  - Cognitive disorder [Not Recovered/Not Resolved]
  - Photopsia [Not Recovered/Not Resolved]
  - Visual impairment [Not Recovered/Not Resolved]
  - Photosensitivity reaction [Not Recovered/Not Resolved]
  - Tremor [Not Recovered/Not Resolved]
  - Burning sensation [Recovered/Resolved]
  - Hypoaesthesia [Recovered/Resolved]
  - Influenza like illness [Recovered/Resolved]
  - Depression [Not Recovered/Not Resolved]
  - Anxiety [Not Recovered/Not Resolved]
  - Muscular weakness [Not Recovered/Not Resolved]
  - Fatigue [Not Recovered/Not Resolved]
  - Feeling abnormal [Unknown]
  - Insomnia [Unknown]
